FAERS Safety Report 12862272 (Version 1)
Quarter: 2016Q4

REPORT INFORMATION
  Report Type: Report from Study
  Country: IT (occurrence: IT)
  Receive Date: 20161019
  Receipt Date: 20161019
  Transmission Date: 20170207
  Serious: Yes (Hospitalization)
  Sender: FDA-Public Use
  Company Number: IT-TEVA-702180ACC

PATIENT
  Age: 60 Year
  Sex: Female

DRUGS (9)
  1. CARBOLITHIUM - 300 MG CAPSULE RIGIDE - TEVA ITALIA S.R.L. [Suspect]
     Active Substance: LITHIUM CARBONATE
     Indication: BIPOLAR DISORDER
     Dosage: 900 MG DAILY
     Route: 048
     Dates: start: 20121109, end: 20160707
  2. NATECAL D3  - 600 MG + 400 U.I. COMPRESSE MASTICABILI [Concomitant]
     Indication: PRODUCT USED FOR UNKNOWN INDICATION
     Dosage: 3 DF
  3. LASIX [Concomitant]
     Active Substance: FUROSEMIDE
     Indication: PRODUCT USED FOR UNKNOWN INDICATION
     Dosage: 1 DF
  4. URBASON - 4 MG COMPRESSE [Concomitant]
     Indication: SJOGREN^S SYNDROME
     Dosage: .5 DF
  5. PLAQUENIL - 200 MG COMPRESSE RIVESTITE [Concomitant]
     Indication: SJOGREN^S SYNDROME
     Dosage: 1 DF
  6. FOLINA - 5 MG CAPSULE MOLLI [Concomitant]
     Indication: PRODUCT USED FOR UNKNOWN INDICATION
     Dosage: 1 DF
  7. RAMIPRIL. [Concomitant]
     Active Substance: RAMIPRIL
     Indication: PRODUCT USED FOR UNKNOWN INDICATION
     Dosage: 2.5 MG
  8. ACTONEL - 35 MG COMPRESSE RIVESTITE CON FILM [Concomitant]
     Indication: PRODUCT USED FOR UNKNOWN INDICATION
     Dosage: 1 DF
  9. DIBASE - 25.000 UI/2,5 ML SOLUZIONE ORALE [Concomitant]
     Active Substance: CHOLECALCIFEROL
     Indication: PRODUCT USED FOR UNKNOWN INDICATION
     Dosage: 1 DF

REACTIONS (5)
  - Myoclonus [Recovered/Resolved]
  - Hypothyroidism [Recovered/Resolved]
  - Psychomotor skills impaired [Recovered/Resolved]
  - Bradycardia [Recovered/Resolved]
  - Dizziness [Recovered/Resolved]

NARRATIVE: CASE EVENT DATE: 20160707
